FAERS Safety Report 6735373-8 (Version None)
Quarter: 2010Q2

REPORT INFORMATION
  Report Type: 
  Country: None (occurrence: None)
  Receive Date: 20100521
  Receipt Date: 20100420
  Transmission Date: 20101027
  Serious: No
  Sender: FDA-Public Use
  Company Number: US-BAYER-201014506BCC

PATIENT
  Age: 76 Year
  Sex: Female
  Weight: 64 kg

DRUGS (4)
  1. ALEVE (CAPLET) [Suspect]
     Indication: ARTHRALGIA
     Dosage: AS USED: 220/440 MG
     Dates: start: 20100301, end: 20100401
  2. ZOLOFT [Concomitant]
  3. ATENOLOL [Concomitant]
  4. COUMADIN [Concomitant]

REACTIONS (2)
  - BLOOD VISCOSITY INCREASED [None]
  - PLATELET COUNT DECREASED [None]
